FAERS Safety Report 9669343 (Version 2)
Quarter: 2013Q4

REPORT INFORMATION
  Report Type: Spontaneous
  Country: GB (occurrence: GB)
  Receive Date: 20131105
  Receipt Date: 20131105
  Transmission Date: 20140711
  Serious: Yes (Hospitalization, Other)
  Sender: FDA-Public Use
  Company Number: GB-PFIZER INC-2013312944

PATIENT
  Age: 86 Year
  Sex: Female
  Weight: 61 kg

DRUGS (5)
  1. RAMIPRIL [Suspect]
     Dosage: 5 MG, 1X/DAY
  2. BENDROFLUMETHIAZIDE [Suspect]
     Dosage: 2.5 MG, 1X/DAY
  3. CO-CODAMOL [Suspect]
     Indication: FALL
     Dosage: 30/500 MG, 2 TABS QDS PRN
  4. SIMVASTATIN [Concomitant]
     Dosage: 40 MG, NOCTE
  5. ACETYLSALICYLIC ACID [Concomitant]
     Dosage: 75 MG, 1X/DAY

REACTIONS (9)
  - Activities of daily living impaired [Recovering/Resolving]
  - Renal failure acute [Unknown]
  - Fall [Unknown]
  - Toxicity to various agents [Unknown]
  - Urinary tract infection [Unknown]
  - Orthostatic hypotension [Unknown]
  - Constipation [Unknown]
  - Somnolence [Recovering/Resolving]
  - Blood sodium decreased [Unknown]
